FAERS Safety Report 21311951 (Version 1)
Quarter: 2022Q3

REPORT INFORMATION
  Report Type: Spontaneous
  Country: US (occurrence: None)
  Receive Date: 20220908
  Receipt Date: 20220908
  Transmission Date: 20221027
  Serious: Yes (Hospitalization)
  Sender: FDA-Public Use
  Company Number: None

PATIENT
  Age: 74 Year
  Sex: Male
  Weight: 56 kg

DRUGS (1)
  1. BCG VACCINE [Suspect]
     Active Substance: BCG VACCINE
     Indication: Bladder cancer
     Dates: start: 20201001

REACTIONS (3)
  - Pyrexia [None]
  - Mycobacterium tuberculosis complex test positive [None]
  - Aspiration bone marrow abnormal [None]

NARRATIVE: CASE EVENT DATE: 20220301
